FAERS Safety Report 24174909 (Version 9)
Quarter: 2025Q1

REPORT INFORMATION
  Report Type: Spontaneous
  Country: US (occurrence: US)
  Receive Date: 20240805
  Receipt Date: 20250325
  Transmission Date: 20250408
  Serious: No
  Sender: KARYOPHARM THERAPEUTICS
  Company Number: US-KARYOPHARM-2024KPT001134

PATIENT

DRUGS (17)
  1. XPOVIO [Suspect]
     Active Substance: SELINEXOR
     Indication: Plasma cell myeloma
     Route: 048
     Dates: start: 20240516
  2. XPOVIO [Suspect]
     Active Substance: SELINEXOR
     Route: 048
  3. POMALYST [Concomitant]
     Active Substance: POMALIDOMIDE
  4. DOXYCYCLINE [Concomitant]
     Active Substance: DOXYCYCLINE
  5. FINASTERIDE [Concomitant]
     Active Substance: FINASTERIDE
  6. HYDROCHLOROTHIAZIDE [Concomitant]
     Active Substance: HYDROCHLOROTHIAZIDE
  7. INDERAL LA [Concomitant]
     Active Substance: PROPRANOLOL HYDROCHLORIDE
  8. KEFLEX [Concomitant]
     Active Substance: CEPHALEXIN
  9. KETOCONAZOLE [Concomitant]
     Active Substance: KETOCONAZOLE
  10. PROCHLORPERAZINE [Concomitant]
     Active Substance: PROCHLORPERAZINE
  11. PROGESTERONE [Concomitant]
     Active Substance: PROGESTERONE
  12. PROPRANOLOL HYDROCHLORIDE [Concomitant]
     Active Substance: PROPRANOLOL HYDROCHLORIDE
  13. ROSUVASTATIN [Concomitant]
     Active Substance: ROSUVASTATIN
  14. SILODOSIN [Concomitant]
     Active Substance: SILODOSIN
  15. XARELTO [Concomitant]
     Active Substance: RIVAROXABAN
  16. ZYPREXA [Concomitant]
     Active Substance: OLANZAPINE
  17. DECADRON [Concomitant]
     Active Substance: DEXAMETHASONE

REACTIONS (14)
  - Cough [Recovering/Resolving]
  - Lethargy [Unknown]
  - Akathisia [Unknown]
  - Nasopharyngitis [Recovering/Resolving]
  - Rash [Recovered/Resolved]
  - Quality of life decreased [Unknown]
  - Hypotension [Unknown]
  - Restless legs syndrome [Recovering/Resolving]
  - Fatigue [Not Recovered/Not Resolved]
  - Dizziness [Not Recovered/Not Resolved]
  - Constipation [Unknown]
  - Nausea [Not Recovered/Not Resolved]
  - Decreased appetite [Unknown]
  - Asthenia [Unknown]

NARRATIVE: CASE EVENT DATE: 20240101
